FAERS Safety Report 10423394 (Version 1)
Quarter: 2014Q3

REPORT INFORMATION
  Report Type: Spontaneous
  Country: BR (occurrence: BR)
  Receive Date: 20140902
  Receipt Date: 20140902
  Transmission Date: 20150326
  Serious: Yes (Other)
  Sender: FDA-Public Use
  Company Number: BR-ASTRAZENECA-2014SE64155

PATIENT
  Sex: Male

DRUGS (7)
  1. PROPANOLOL [Suspect]
     Active Substance: PROPRANOLOL HYDROCHLORIDE
     Route: 048
  2. LEVIC (NOT MATCH) [Concomitant]
  3. CARVIDEN (NOT MATCH) [Concomitant]
  4. FUROSEMIDE. [Concomitant]
     Active Substance: FUROSEMIDE
     Route: 048
  5. ATACAND [Suspect]
     Active Substance: CANDESARTAN CILEXETIL
     Route: 048
  6. ASPIRINA [Concomitant]
     Active Substance: ASPIRIN
     Route: 048
  7. BRILINTA [Suspect]
     Active Substance: TICAGRELOR
     Route: 048
     Dates: start: 201308, end: 201408

REACTIONS (1)
  - Cataract [Not Recovered/Not Resolved]
